FAERS Safety Report 9498860 (Version 3)
Quarter: 2014Q1

REPORT INFORMATION
  Report Type: Report from Study
  Country: CA (occurrence: CA)
  Receive Date: 20130904
  Receipt Date: 20140303
  Transmission Date: 20141002
  Serious: Yes (Hospitalization, Other)
  Sender: FDA-Public Use
  Company Number: CA-ROCHE-1132763

PATIENT
  Age: 61 Year
  Sex: Male
  Weight: 78 kg

DRUGS (10)
  1. ACTEMRA [Suspect]
     Indication: RHEUMATOID ARTHRITIS
     Route: 042
     Dates: start: 20101119
  2. CELEBREX [Concomitant]
  3. PAXIL [Concomitant]
  4. ATIVAN [Concomitant]
  5. METHOTREXATE [Concomitant]
     Route: 065
  6. FOLIC ACID [Concomitant]
  7. PREDNISONE [Concomitant]
  8. ROSUVASTATIN [Concomitant]
  9. CRESTOR [Concomitant]
  10. PAROXETINE [Concomitant]

REACTIONS (7)
  - Arthritis bacterial [Unknown]
  - Arthritis infective [Unknown]
  - Infection [Not Recovered/Not Resolved]
  - Pain in extremity [Recovered/Resolved]
  - Oedema [Recovered/Resolved]
  - Arthralgia [Recovered/Resolved]
  - Wrist surgery [Unknown]
